FAERS Safety Report 13939444 (Version 1)
Quarter: 2017Q3

REPORT INFORMATION
  Report Type: Spontaneous
  Country: JP (occurrence: JP)
  Receive Date: 20170906
  Receipt Date: 20170906
  Transmission Date: 20171127
  Serious: Yes (Other)
  Sender: FDA-Public Use
  Company Number: JP-BRISTOL-MYERS SQUIBB COMPANY-BMS-2017-079500

PATIENT
  Sex: Male

DRUGS (1)
  1. ELIQUIS [Suspect]
     Active Substance: APIXABAN
     Indication: CEREBROVASCULAR ACCIDENT PROPHYLAXIS
     Dosage: UNK
     Route: 065
     Dates: start: 2017, end: 2017

REACTIONS (6)
  - Pyrexia [Unknown]
  - Splenomegaly [Unknown]
  - Arteriovenous fistula [Unknown]
  - White blood cell count decreased [Unknown]
  - Haematuria [Unknown]
  - Anaemia [Unknown]

NARRATIVE: CASE EVENT DATE: 2017
